FAERS Safety Report 24358847 (Version 4)
Quarter: 2025Q3

REPORT INFORMATION
  Report Type: Report from Study
  Country: CO (occurrence: CO)
  Receive Date: 20240924
  Receipt Date: 20250916
  Transmission Date: 20251021
  Serious: Yes (Hospitalization)
  Sender: TAKEDA
  Company Number: CO-TAKEDA-2024TUS094554

PATIENT
  Age: 21 Year
  Sex: Female
  Weight: 57.7 kg

DRUGS (2)
  1. VEDOLIZUMAB [Suspect]
     Active Substance: VEDOLIZUMAB
     Indication: Colitis ulcerative
  2. MESALAMINE [Suspect]
     Active Substance: MESALAMINE
     Indication: Product used for unknown indication

REACTIONS (8)
  - Pilonidal disease [Unknown]
  - Haemoglobin decreased [Unknown]
  - Product availability issue [Unknown]
  - Flushing [Not Recovered/Not Resolved]
  - Peripheral swelling [Unknown]
  - Limb discomfort [Unknown]
  - Arthropod bite [Unknown]
  - Erythema [Unknown]

NARRATIVE: CASE EVENT DATE: 20250826
